FAERS Safety Report 6142721-9 (Version None)
Quarter: 2009Q2

REPORT INFORMATION
  Report Type: 
  Country: None (occurrence: None)
  Receive Date: 20090403
  Receipt Date: 20090331
  Transmission Date: 20091009
  Serious: Yes (Death)
  Sender: FDA-Public Use
  Company Number: CO-ASTRAZENECA-2009UW08120

PATIENT
  Age: 23 Year
  Sex: Male

DRUGS (1)
  1. MERONEM [Suspect]
     Indication: PNEUMONIA
     Route: 042
     Dates: start: 20090322, end: 20090329

REACTIONS (1)
  - TOXIC EPIDERMAL NECROLYSIS [None]
